FAERS Safety Report 4934203-4 (Version None)
Quarter: 2006Q1

REPORT INFORMATION
  Report Type: 
  Country: None (occurrence: None)
  Receive Date: 20060303
  Receipt Date: 20060222
  Transmission Date: 20060701
  Serious: Yes (Life-Threatening, Hospitalization)
  Sender: FDA-Public Use
  Company Number: DE-2006-002626

PATIENT
  Age: 48 Year
  Sex: Female

DRUGS (6)
  1. YASMIN [Suspect]
     Indication: ALOPECIA
     Dosage: ORAL
     Route: 048
     Dates: start: 20051001, end: 20051124
  2. ACE INHIBITOR NOS() [Suspect]
  3. ESIDRIX [Concomitant]
  4. NORVASC /DEN/ (AMLODIPINE BESILATE) [Concomitant]
  5. CATAPRESAN 150 (CLONIDINE) [Concomitant]
  6. NEXIUM [Concomitant]

REACTIONS (5)
  - ANAPHYLACTIC REACTION [None]
  - ANGIONEUROTIC OEDEMA [None]
  - ASTHENIA [None]
  - EPIGLOTTITIS [None]
  - FOOD ALLERGY [None]
